FAERS Safety Report 5642636-6 (Version None)
Quarter: 2008Q1

REPORT INFORMATION
  Report Type: 
  Country: None (occurrence: None)
  Receive Date: 20080227
  Receipt Date: 20080227
  Transmission Date: 20080703
  Serious: Yes (Hospitalization)
  Sender: FDA-Public Use
  Company Number: None

PATIENT

DRUGS (9)
  1. FOSAMAX [Suspect]
     Indication: OSTEOPOROSIS
     Dosage: 70MG PO QWEEK   (THERAPY DATES: PRIOR TO ADMISSION)
     Route: 048
  2. ZETIA [Concomitant]
  3. ENALAPRIL MALEATE [Concomitant]
  4. LESCOL [Concomitant]
  5. FOLGARD [Concomitant]
  6. METOPROLOL TARTRATE [Concomitant]
  7. ASPIRIN [Concomitant]
  8. OCUPRESS [Concomitant]
  9. CALCIUM GLUCONATE [Concomitant]

REACTIONS (2)
  - ABDOMINAL PAIN UPPER [None]
  - NAUSEA [None]
